FAERS Safety Report 19021622 (Version 1)
Quarter: 2021Q1

REPORT INFORMATION
  Report Type: Spontaneous
  Country: RO (occurrence: RO)
  Receive Date: 20210317
  Receipt Date: 20210317
  Transmission Date: 20210420
  Serious: Yes (Other)
  Sender: FDA-Public Use
  Company Number: RO-ROCHE-2791433

PATIENT
  Age: 54 Year
  Sex: Male

DRUGS (4)
  1. TECENTRIQ [Suspect]
     Active Substance: ATEZOLIZUMAB
     Indication: BLADDER TRANSITIONAL CELL CARCINOMA STAGE III
     Route: 065
     Dates: start: 20200220
  2. CARBOPLATIN. [Concomitant]
     Active Substance: CARBOPLATIN
  3. GEMZAR [Concomitant]
     Active Substance: GEMCITABINE HYDROCHLORIDE
     Dosage: 1250 MG/SQM, DT = 2500 MG, DAY 1.8
  4. CISPLATIN. [Concomitant]
     Active Substance: CISPLATIN
     Dosage: 2 CYCLES 40 MG/SQM

REACTIONS (4)
  - Leukopenia [Unknown]
  - Hyperthyroidism [Unknown]
  - Neutropenia [Unknown]
  - Thrombocytopenia [Unknown]
